FAERS Safety Report 18980255 (Version 2)
Quarter: 2021Q1

REPORT INFORMATION
  Report Type: Spontaneous
  Country: US (occurrence: US)
  Receive Date: 20210308
  Receipt Date: 20210319
  Transmission Date: 20210420
  Serious: Yes (Other)
  Sender: FDA-Public Use
  Company Number: US-JNJFOC-20210305478

PATIENT
  Age: 31 Year
  Sex: Male
  Weight: 90.8 kg

DRUGS (4)
  1. HALDOL DECANOATE [Suspect]
     Active Substance: HALOPERIDOL DECANOATE
     Indication: PSYCHOTIC DISORDER
     Route: 030
  2. HALOPERIDOL. [Suspect]
     Active Substance: HALOPERIDOL
     Indication: PRODUCT USED FOR UNKNOWN INDICATION
     Route: 048
     Dates: start: 200909
  3. IBUPROFEN. [Concomitant]
     Active Substance: IBUPROFEN
  4. MELATONINE [Suspect]
     Active Substance: MELATONIN
     Indication: PRODUCT USED FOR UNKNOWN INDICATION
     Route: 065

REACTIONS (4)
  - Cardiac dysfunction [Unknown]
  - Feeling abnormal [Recovered/Resolved]
  - Alopecia [Unknown]
  - Muscle injury [Unknown]

NARRATIVE: CASE EVENT DATE: 200909
